FAERS Safety Report 7023565-2 (Version None)
Quarter: 2010Q3

REPORT INFORMATION
  Report Type: 
  Country: None (occurrence: None)
  Receive Date: 20100929
  Receipt Date: 20100929
  Transmission Date: 20110219
  Serious: No
  Sender: FDA-Public Use
  Company Number: None

PATIENT
  Age: 76 Year
  Sex: Male
  Weight: 84.8226 kg

DRUGS (1)
  1. SAGE 2% CHLORHEXIDINE GLUCONATE CLOTH [Suspect]
     Indication: KNEE ARTHROPLASTY
     Dosage: PRE-OP SKIN WASH TO LEFT LOWER LEG
     Dates: start: 20100907

REACTIONS (1)
  - BLISTER [None]
